FAERS Safety Report 12976195 (Version 3)
Quarter: 2016Q4

REPORT INFORMATION
  Report Type: Spontaneous
  Country: JP (occurrence: JP)
  Receive Date: 20161126
  Receipt Date: 20161229
  Transmission Date: 20170207
  Serious: Yes (Other)
  Sender: FDA-Public Use
  Company Number: JP-AMGEN-JPNSP2016167867

PATIENT
  Age: 83 Year
  Sex: Female

DRUGS (18)
  1. MAGMITT [Concomitant]
     Active Substance: MAGNESIUM OXIDE
     Dosage: 660 TO 1000 MG, BID, AFTER BREAKFAST AND SUPPER
     Route: 065
  2. PRALIA [Suspect]
     Active Substance: DENOSUMAB
     Dosage: 60 MG, Q6MO
     Route: 058
     Dates: start: 20150113
  3. PONSTEL [Concomitant]
     Active Substance: MEFENAMIC ACID
     Dosage: 250 MG, AS NECESSARY,  TIME OF PAIN
     Route: 065
  4. NIZORAL [Concomitant]
     Active Substance: KETOCONAZOLE
     Dosage: UNK, QD
     Route: 050
  5. RECALBON [Concomitant]
     Active Substance: MINODRONIC ACID
     Dosage: UNK, QMO,  AT THE TIME OF GETTING UP
     Route: 065
     Dates: start: 20111014, end: 20131213
  6. PREDONINE [Concomitant]
     Active Substance: PREDNISOLONE\PREDNISOLONE ACETATE\PREDNISOLONE SODIUM SUCCINATE
     Dosage: 10 MG, QD, AFTER BREAKFAST AND LUNCH
     Route: 065
  7. LANSOPRAZOLE. [Concomitant]
     Active Substance: LANSOPRAZOLE
     Dosage: 15 MG, QD, AFTER LUNCH
     Route: 065
  8. KARY UNI [Concomitant]
     Active Substance: PIRENOXINE
     Dosage: UNK, TID
     Route: 047
  9. MENTAX [Concomitant]
     Active Substance: BUTENAFINE HYDROCHLORIDE
     Dosage: UNK UNK, QD, APPLY
     Route: 050
  10. CALONAL [Concomitant]
     Active Substance: ACETAMINOPHEN
     Dosage: 300 MG, AS NECESSARY,  TIME OF PAIN
     Route: 065
  11. PRALIA [Suspect]
     Active Substance: DENOSUMAB
     Indication: PRODUCT USED FOR UNKNOWN INDICATION
     Dosage: 60 MG, Q6MO
     Route: 058
     Dates: start: 20140715
  12. PRALIA [Suspect]
     Active Substance: DENOSUMAB
     Dosage: 60 MG, Q6MO
     Route: 058
     Dates: start: 20150713, end: 20150713
  13. CELECOX [Concomitant]
     Active Substance: CELECOXIB
     Dosage: 400 MG, BID, AFTER BREAKFAST AND SUPPER
     Route: 065
  14. DENOTAS [Concomitant]
     Active Substance: CALCIUM CARBONATE\CHOLECALCIFEROL\MAGNESIUM CARBONATE
     Dosage: 2 DF, QD, AFTER BREAKFAST
     Route: 065
  15. RHEUMATREX [Concomitant]
     Active Substance: METHOTREXATE SODIUM
     Dosage: 2 TO 4 MG, QD, AFTER BREAKFAST (THURSDAY)
     Route: 065
  16. HYALONSAN [Concomitant]
     Dosage: UNK UNK, QID
     Route: 047
  17. BONOTEO [Concomitant]
     Active Substance: MINODRONIC ACID
     Dosage: UNK, QMO, AT THE TIME OF GETTING UP
     Route: 065
     Dates: start: 20110916
  18. MEMARY [Concomitant]
     Active Substance: MEMANTINE HYDROCHLORIDE
     Dosage: 10 MG, QD, AFTER BREAKFAST
     Route: 065

REACTIONS (1)
  - Osteonecrosis of jaw [Recovering/Resolving]

NARRATIVE: CASE EVENT DATE: 20150910
